FAERS Safety Report 17996080 (Version 3)
Quarter: 2020Q3

REPORT INFORMATION
  Report Type: Spontaneous
  Country: US (occurrence: US)
  Receive Date: 20200708
  Receipt Date: 20200824
  Transmission Date: 20201103
  Serious: No
  Sender: FDA-Public Use
  Company Number: US-PFIZER INC-2020260020

PATIENT
  Age: 55 Year
  Sex: Female

DRUGS (5)
  1. SOMAVERT [Suspect]
     Active Substance: PEGVISOMANT
     Indication: INSULIN-LIKE GROWTH FACTOR
     Dosage: 10 MG, DAILY [THEN 10 MG DAILY DAY 2]
     Route: 058
  2. SOMAVERT [Suspect]
     Active Substance: PEGVISOMANT
     Dosage: 160 MG, WEEKLY [40 MG FOUR TIME/WEEK/TOTAL WEEKLY DOSE OF 160 MG]
     Route: 058
  3. SOMAVERT [Suspect]
     Active Substance: PEGVISOMANT
     Dosage: 120 MG, WEEKLY [40 MG THREE/WEEK/TOTAL WEEKLY DOSE OF 120 MG]
     Route: 058
     Dates: start: 20200301
  4. SOMATULINE DEPOT [Concomitant]
     Active Substance: LANREOTIDE ACETATE
     Dosage: UNK
  5. SOMAVERT [Suspect]
     Active Substance: PEGVISOMANT
     Indication: ACROMEGALY
     Dosage: 40 MG, DAILY [DAY 1]
     Route: 058
     Dates: start: 20080101

REACTIONS (1)
  - Drug ineffective [Unknown]
